FAERS Safety Report 12442764 (Version 1)
Quarter: 2016Q2

REPORT INFORMATION
  Report Type: Spontaneous
  Country: None (occurrence: None)
  Receive Date: 20160606
  Receipt Date: 20160606
  Transmission Date: 20160815
  Serious: Yes (Other)
  Sender: FDA-Public Use
  Company Number: None

PATIENT
  Age: 67 Year
  Sex: Male
  Weight: 81.65 kg

DRUGS (8)
  1. TRAMADOL 50MG, 50 MG ZYDUS [Suspect]
     Active Substance: TRAMADOL
     Indication: POSTOPERATIVE ANALGESIA
     Route: 048
     Dates: start: 20160510, end: 20160526
  2. CODLIVER OIL [Concomitant]
  3. CALCIUM [Concomitant]
     Active Substance: CALCIUM
  4. VITAMIN D3 [Concomitant]
     Active Substance: CHOLECALCIFEROL
  5. VITAMIN B COMPLEX [Concomitant]
     Active Substance: CYANOCOBALAMIN\DEXPANTHENOL\NIACINAMIDE\PYRIDOXINE HYDROCHLORIDE\RIBOFLAVIN 5^-PHOSPHATE SODIUM\THIAMINE HYDROCHLORIDE\VITAMIN B COMPLEX
  6. UBIQUINOL [Concomitant]
     Active Substance: UBIQUINOL
  7. SAW PALMETTO [Concomitant]
     Active Substance: SAW PALMETTO
  8. MAGNESIUM [Concomitant]
     Active Substance: MAGNESIUM

REACTIONS (19)
  - Crying [None]
  - Insomnia [None]
  - Frequent bowel movements [None]
  - Sneezing [None]
  - Facial pain [None]
  - Dyspnoea [None]
  - Chills [None]
  - Major depression [None]
  - Fatigue [None]
  - Nervousness [None]
  - Burning sensation [None]
  - Cough [None]
  - Pain in extremity [None]
  - Tremor [None]
  - Toothache [None]
  - Asthenia [None]
  - Rhinorrhoea [None]
  - Heart rate increased [None]
  - Decreased appetite [None]

NARRATIVE: CASE EVENT DATE: 20160526
